FAERS Safety Report 15075055 (Version 2)
Quarter: 2023Q4

REPORT INFORMATION
  Report Type: Spontaneous
  Country: US (occurrence: US)
  Receive Date: 20180627
  Receipt Date: 20231109
  Transmission Date: 20240110
  Serious: Yes (Death)
  Sender: FDA-Public Use
  Company Number: US-SAOL THERAPEUTICS-2017SAO01725

PATIENT

DRUGS (6)
  1. BACLOFEN [Suspect]
     Active Substance: BACLOFEN
     Indication: Muscle spasticity
     Dosage: 114.96 ?G, \DAY
     Route: 037
  2. BACLOFEN [Suspect]
     Active Substance: BACLOFEN
     Indication: Cerebrovascular accident
  3. MORPHINE [Suspect]
     Active Substance: MORPHINE
     Dosage: 597.8 ?G, \DAY
     Route: 037
  4. ALBUTEROL [Concomitant]
     Active Substance: ALBUTEROL
  5. ASMANEX [Concomitant]
     Active Substance: MOMETASONE FUROATE
  6. FORADIL [Concomitant]
     Active Substance: FORMOTEROL FUMARATE

REACTIONS (2)
  - Pneumonia [Fatal]
  - Pyrexia [Unknown]
